FAERS Safety Report 8842111 (Version 3)
Quarter: 2013Q1

REPORT INFORMATION
  Report Type: Report from Study
  Country: AU (occurrence: AU)
  Receive Date: 20121016
  Receipt Date: 20130107
  Transmission Date: 20140127
  Serious: Yes (Death, Hospitalization, Other)
  Sender: FDA-Public Use
  Company Number: PHHY2012AU091285

PATIENT
  Sex: Female

DRUGS (5)
  1. CLOZARIL [Suspect]
     Dosage: 175 MG, UNK
     Dates: start: 19970912
  2. CLOZARIL [Suspect]
     Dosage: UNK UKN, DOSE REDUCED
     Dates: start: 2007
  3. DIAZEPAM [Concomitant]
     Indication: AGITATION
     Dosage: 2 MG AT NIGHT
     Route: 048
  4. DIAZEPAM [Concomitant]
     Dosage: UNK
  5. CLONAZEPAM [Concomitant]
     Indication: AGITATION
     Dosage: 2 MG, IN NOCTE

REACTIONS (5)
  - Cardiac disorder [Fatal]
  - Lobar pneumonia [Unknown]
  - Wheezing [Unknown]
  - Cough [Unknown]
  - Cardiomyopathy [Unknown]
